FAERS Safety Report 13580492 (Version 1)
Quarter: 2017Q2

REPORT INFORMATION
  Report Type: Spontaneous
  Country: IT (occurrence: IT)
  Receive Date: 20170525
  Receipt Date: 20170525
  Transmission Date: 20170830
  Serious: Yes (Hospitalization)
  Sender: FDA-Public Use
  Company Number: IT-SUN PHARMACEUTICAL INDUSTRIES LTD-2017RR-141366

PATIENT
  Age: 93 Year
  Sex: Male

DRUGS (6)
  1. TAMSULOSIN [Suspect]
     Active Substance: TAMSULOSIN
     Indication: URINARY RETENTION
     Dosage: 1.6 MG TOTAL
     Route: 048
     Dates: start: 20170416, end: 20170416
  2. TRITTICO 25 MG/ML [Suspect]
     Active Substance: TRAZODONE HYDROCHLORIDE
     Indication: DEPRESSION
     Dosage: 15 ML TOTAL
     Route: 048
     Dates: start: 20170416, end: 20170416
  3. LASIX [Suspect]
     Active Substance: FUROSEMIDE
     Indication: HYPERTENSION
     Dosage: 400 MG TOTAL
     Route: 048
     Dates: start: 20170416, end: 20170416
  4. RAMIPRIL. [Suspect]
     Active Substance: RAMIPRIL
     Indication: HYPERTENSION
     Dosage: 20 MG TOTAL
     Route: 048
     Dates: start: 20170416, end: 20170416
  5. BISOPROLOL [Suspect]
     Active Substance: BISOPROLOL
     Indication: PRODUCT USED FOR UNKNOWN INDICATION
     Dosage: 5 MG TOTAL
     Route: 048
     Dates: start: 20170416, end: 20170416
  6. CITALOPRAM [Suspect]
     Active Substance: CITALOPRAM HYDROBROMIDE
     Indication: DEPRESSION
     Dosage: 120 MG TOTAL
     Route: 048
     Dates: start: 20170416, end: 20170416

REACTIONS (4)
  - Intentional self-injury [Recovered/Resolved]
  - Overdose [Recovered/Resolved]
  - Electrocardiogram QT prolonged [Recovered/Resolved]
  - Asthenia [Recovered/Resolved]

NARRATIVE: CASE EVENT DATE: 20170416
